FAERS Safety Report 5270346-6 (Version None)
Quarter: 2007Q1

REPORT INFORMATION
  Report Type: 
  Country: None (occurrence: None)
  Receive Date: 20070320
  Receipt Date: 20070308
  Transmission Date: 20070707
  Serious: Yes (Other)
  Sender: FDA-Public Use
  Company Number: US-PFIZER INC-2006155458

PATIENT
  Sex: Female

DRUGS (7)
  1. CHANTIX [Interacting]
  2. GABAPENTIN [Suspect]
     Indication: BIPOLAR II DISORDER
  3. NICOTINE [Interacting]
  4. IBUPROFEN [Interacting]
     Indication: PAIN
  5. ALL OTHER THERAPEUTIC PRODUCTS [Interacting]
  6. CYCLOSPORINE [Interacting]
  7. DESIPRAMINE HCL [Concomitant]
     Indication: BIPOLAR II DISORDER

REACTIONS (12)
  - AFFECT LABILITY [None]
  - CONDITION AGGRAVATED [None]
  - CRYING [None]
  - DRUG EFFECT DECREASED [None]
  - DRUG INEFFECTIVE [None]
  - DRUG INTERACTION [None]
  - DRUG WITHDRAWAL SYNDROME [None]
  - DRY EYE [None]
  - IRRITABILITY [None]
  - OBSESSIVE THOUGHTS [None]
  - PAIN [None]
  - THINKING ABNORMAL [None]
